FAERS Safety Report 12816897 (Version 1)
Quarter: 2016Q4

REPORT INFORMATION
  Report Type: Spontaneous
  Country: US (occurrence: US)
  Receive Date: 20161006
  Receipt Date: 20161006
  Transmission Date: 20170207
  Serious: No
  Sender: FDA-Public Use
  Company Number: US-PAR PHARMACEUTICAL, INC-2016SCPR015588

PATIENT

DRUGS (9)
  1. DARIFENACIN HYDROBROMIDE. [Suspect]
     Active Substance: DARIFENACIN HYDROBROMIDE
     Indication: HYPERTONIC BLADDER
     Dosage: 1 DF, OD
     Route: 048
     Dates: start: 20160605, end: 20160613
  2. METFORMIN [Concomitant]
     Active Substance: METFORMIN HYDROCHLORIDE
     Indication: TYPE 2 DIABETES MELLITUS
     Dosage: 1 DF, BID
     Route: 048
  3. AMOXICILLIN                        /00249602/ [Concomitant]
     Active Substance: AMOXICILLIN
     Indication: PROSTATE INFECTION
     Dosage: 1 DF, TID FOR SIX WEEKS
     Route: 048
     Dates: start: 20160610
  4. FENOFIBRATE. [Concomitant]
     Active Substance: FENOFIBRATE
     Indication: BLOOD CHOLESTEROL ABNORMAL
     Dosage: 1 DF, OD
     Route: 048
  5. LOSARTAN                           /01121602/ [Concomitant]
     Active Substance: LOSARTAN
     Indication: HYPERTENSION
     Dosage: 0.5 DF, BID
     Route: 048
  6. TRULICITY [Concomitant]
     Active Substance: DULAGLUTIDE
     Indication: TYPE 2 DIABETES MELLITUS
     Dosage: ONE SHOT, WEEKLY
     Route: 065
  7. ALFUZOSIN                          /00975302/ [Concomitant]
     Indication: MICTURITION URGENCY
     Dosage: 1 DF, OD
     Route: 048
  8. VASCEPA [Concomitant]
     Active Substance: ICOSAPENT ETHYL
     Indication: BLOOD TRIGLYCERIDES ABNORMAL
     Dosage: 1 DF, BID
     Route: 048
  9. JARDIANCE [Concomitant]
     Active Substance: EMPAGLIFLOZIN
     Indication: TYPE 2 DIABETES MELLITUS
     Dosage: 1 DF, OD
     Route: 048

REACTIONS (5)
  - Dizziness [Recovering/Resolving]
  - Urinary straining [Recovering/Resolving]
  - Discomfort [Recovering/Resolving]
  - Drug ineffective [Recovering/Resolving]
  - Product quality issue [Unknown]

NARRATIVE: CASE EVENT DATE: 20160608
